FAERS Safety Report 7729589-1 (Version None)
Quarter: 2011Q3

REPORT INFORMATION
  Report Type: 
  Country: None (occurrence: None)
  Receive Date: 20110906
  Receipt Date: 20110413
  Transmission Date: 20111222
  Serious: No
  Sender: FDA-Public Use
  Company Number: US-BAYER-2011-032784

PATIENT
  Age: 34 Year
  Sex: Female

DRUGS (1)
  1. MIRENA [Suspect]
     Dosage: UNK
     Dates: start: 20100301

REACTIONS (5)
  - FUNGAL INFECTION [None]
  - DEVICE DISLOCATION [None]
  - ABDOMINAL PAIN [None]
  - AMENORRHOEA [None]
  - PROCEDURAL PAIN [None]
